FAERS Safety Report 7218175-8 (Version None)
Quarter: 2011Q1

REPORT INFORMATION
  Report Type: 
  Country: None (occurrence: None)
  Receive Date: 20110110
  Receipt Date: 20070919
  Transmission Date: 20110831
  Serious: Yes (Hospitalization)
  Sender: FDA-Public Use
  Company Number: PHRM2007FR02219

PATIENT
  Age: 47 Year
  Sex: Female
  Weight: 42 kg

DRUGS (2)
  1. BLOOD CELLS, PACKED HUMAN [Concomitant]
     Indication: CONGENITAL APLASTIC ANAEMIA
     Dosage: 2 DF, QMO
     Route: 042
  2. EXJADE [Suspect]
     Indication: IRON OVERLOAD
     Dosage: 1 G, QD
     Route: 048
     Dates: start: 20070628, end: 20070730

REACTIONS (13)
  - METABOLIC ACIDOSIS [None]
  - DIARRHOEA [None]
  - POLYURIA [None]
  - BLOOD CREATININE INCREASED [None]
  - VENOUS THROMBOSIS [None]
  - DECREASED APPETITE [None]
  - RENAL FAILURE ACUTE [None]
  - PROTEINURIA [None]
  - GASTROINTESTINAL DISORDER [None]
  - BLOOD PRESSURE DECREASED [None]
  - LARGE INTESTINE PERFORATION [None]
  - HYPOVOLAEMIC SHOCK [None]
  - WEIGHT DECREASED [None]
